FAERS Safety Report 6106857-0 (Version None)
Quarter: 2009Q1

REPORT INFORMATION
  Report Type: 
  Country: None (occurrence: None)
  Receive Date: 20090303
  Receipt Date: 20090219
  Transmission Date: 20090719
  Serious: Yes (Hospitalization)
  Sender: FDA-Public Use
  Company Number: GXKR2009CH02250

PATIENT
  Age: 63 Year
  Sex: Female

DRUGS (8)
  1. CARVEDILOL [Suspect]
     Dosage: 6.25 MG, QD, ORAL
     Route: 048
     Dates: start: 20080601, end: 20081203
  2. CORDARONE [Suspect]
     Dosage: 150 MG, QD, ORAL
     Route: 048
     Dates: start: 20080601, end: 20081206
  3. RASILEZ (ALISKIREN) FILM-COATED TABLET [Suspect]
     Dosage: 150 MG, QD, ORAL
     Route: 048
     Dates: start: 20080601, end: 20081203
  4. ALDOZONE (BUTIZIDE, SPIRONOLACTONE) [Suspect]
     Indication: CARDIAC FAILURE CONGESTIVE
     Dosage: 1 DF, QD, ORAL
     Route: 048
     Dates: start: 20050101, end: 20081203
  5. ANASTROZOLE [Suspect]
     Indication: BREAST CANCER
     Dosage: 1 MG, QD, ORAL
     Route: 048
     Dates: start: 20030101, end: 20081203
  6. LITALIR (HYDROXYCARBAMIDE) CAPSULE [Suspect]
     Indication: MYELOPROLIFERATIVE DISORDER
     Dosage: 500 MG, QD, ORAL
     Route: 048
     Dates: start: 19980101, end: 20081203
  7. SINTROM [Concomitant]
  8. ANTRA (OMEPRAZOLE) CAPSULE [Concomitant]

REACTIONS (10)
  - ATRIOVENTRICULAR BLOCK COMPLETE [None]
  - DRUG INTERACTION [None]
  - DYSPNOEA [None]
  - HEPATIC FIBROSIS [None]
  - HEPATIC NECROSIS [None]
  - HEPATIC VEIN THROMBOSIS [None]
  - HEPATITIS CHOLESTATIC [None]
  - INFLUENZA [None]
  - MULTI-ORGAN FAILURE [None]
  - SEPSIS [None]
